FAERS Safety Report 15144008 (Version 4)
Quarter: 2019Q3

REPORT INFORMATION
  Report Type: Spontaneous
  Country: JP (occurrence: JP)
  Receive Date: 20180713
  Receipt Date: 20190822
  Transmission Date: 20191004
  Serious: Yes (Hospitalization, Other)
  Sender: FDA-Public Use
  Company Number: JP-SHIRE-JP201823906AA

PATIENT
  Age: 1 Year
  Sex: Male

DRUGS (8)
  1. ADVATE [Suspect]
     Active Substance: ANTIHEMOPHILIC FACTOR, HUMAN RECOMBINANT
     Dosage: 130 IU/KG, 3X A WEEK
     Route: 042
     Dates: start: 201207, end: 2012
  2. ADVATE [Suspect]
     Active Substance: ANTIHEMOPHILIC FACTOR, HUMAN RECOMBINANT
     Indication: FACTOR VIII DEFICIENCY
     Dosage: 50 IU/KG, 1X/WEEK
     Route: 042
     Dates: start: 201012, end: 2011
  3. FEIBA NF [Suspect]
     Active Substance: ANTI-INHIBITOR COAGULANT COMPLEX
     Dosage: 100 IU/KG, QOD
     Route: 065
     Dates: start: 201407, end: 201607
  4. FEIBA NF [Suspect]
     Active Substance: ANTI-INHIBITOR COAGULANT COMPLEX
     Indication: FACTOR VIII DEFICIENCY
     Dosage: 75 IU/KG, 1X/WEEK
     Route: 065
     Dates: start: 2012, end: 201305
  5. FEIBA NF [Suspect]
     Active Substance: ANTI-INHIBITOR COAGULANT COMPLEX
     Dosage: 75 IU/KG, 3X A WEEK
     Route: 065
     Dates: start: 201607, end: 2017
  6. ADVATE [Suspect]
     Active Substance: ANTIHEMOPHILIC FACTOR, HUMAN RECOMBINANT
     Dosage: 50 IU/KG, 3X A WEEK
     Route: 042
     Dates: start: 2011, end: 2011
  7. ADVATE [Suspect]
     Active Substance: ANTIHEMOPHILIC FACTOR, HUMAN RECOMBINANT
     Dosage: 80 IU/KG, 3X A WEEK
     Route: 042
     Dates: start: 2011, end: 201207
  8. FEIBA NF [Suspect]
     Active Substance: ANTI-INHIBITOR COAGULANT COMPLEX
     Indication: FACTOR VIII INHIBITION
     Dosage: 75 IU/KG, 3X A WEEK
     Route: 065
     Dates: start: 201305, end: 2014

REACTIONS (3)
  - Haemorrhage [Recovering/Resolving]
  - Factor VIII inhibition [Recovered/Resolved]
  - Medical device site infection [Unknown]

NARRATIVE: CASE EVENT DATE: 2011
